FAERS Safety Report 9510354 (Version 1)
Quarter: 2013Q3

REPORT INFORMATION
  Report Type: Spontaneous
  Country: US (occurrence: US)
  Receive Date: 20130909
  Receipt Date: 20130909
  Transmission Date: 20140515
  Serious: No
  Sender: FDA-Public Use
  Company Number: US-BRISTOL-MYERS SQUIBB COMPANY-17439159

PATIENT
  Age: 50 Year
  Sex: Male
  Weight: 120.18 kg

DRUGS (7)
  1. ABILIFY TABS 20 MG [Suspect]
  2. VITAMIN D [Concomitant]
  3. GABAPENTIN [Concomitant]
  4. CITRULLINE [Concomitant]
  5. ZINC [Concomitant]
  6. OMEPRAZOLE [Concomitant]
  7. SIMVASTATIN [Concomitant]

REACTIONS (2)
  - Weight increased [Unknown]
  - Hypertension [Unknown]
